FAERS Safety Report 16773890 (Version 1)
Quarter: 2019Q3

REPORT INFORMATION
  Report Type: Spontaneous
  Country: CZ (occurrence: CZ)
  Receive Date: 20190904
  Receipt Date: 20190904
  Transmission Date: 20191005
  Serious: Yes (Other)
  Sender: FDA-Public Use
  Company Number: CZ-AUROBINDO-AUR-APL-2019-057643

PATIENT

DRUGS (3)
  1. OLANZAPINE. [Suspect]
     Active Substance: OLANZAPINE
     Indication: INTELLECTUAL DISABILITY
     Dosage: 10 MILLIGRAM
     Route: 065
  2. LEVOMEPROMAZINE [Suspect]
     Active Substance: LEVOMEPROMAZINE
     Indication: INTELLECTUAL DISABILITY
     Dosage: 125 MILLIGRAM
     Route: 065
  3. CHLORPROTIXEN [Concomitant]
     Active Substance: CHLORPROTHIXENE HYDROCHLORIDE
     Indication: INTELLECTUAL DISABILITY
     Dosage: 250 MILLIGRAM
     Route: 065

REACTIONS (4)
  - Body mass index increased [Unknown]
  - Product use in unapproved indication [Unknown]
  - Sedation [Unknown]
  - Deep vein thrombosis [Unknown]
